FAERS Safety Report 21475925 (Version 1)
Quarter: 2022Q4

REPORT INFORMATION
  Report Type: Report from Study
  Country: US (occurrence: US)
  Receive Date: 20221019
  Receipt Date: 20221019
  Transmission Date: 20230113
  Serious: Yes (Hospitalization)
  Sender: FDA-Public Use
  Company Number: US-BoehringerIngelheim-2022-BI-177387

PATIENT
  Age: 78 Year
  Sex: Female

DRUGS (2)
  1. OFEV [Suspect]
     Active Substance: NINTEDANIB
     Indication: Idiopathic pulmonary fibrosis
     Route: 048
     Dates: start: 20220614
  2. OFEV [Suspect]
     Active Substance: NINTEDANIB
     Route: 048

REACTIONS (22)
  - Pruritus [Not Recovered/Not Resolved]
  - Erythema [Unknown]
  - Dyspnoea [Recovered/Resolved]
  - Headache [Unknown]
  - Vomiting [Unknown]
  - Diarrhoea [Unknown]
  - Abdominal pain [Unknown]
  - Asthenia [Unknown]
  - Cellulitis [Unknown]
  - Abdominal discomfort [Recovered/Resolved]
  - Nausea [Unknown]
  - Feeding disorder [Unknown]
  - Diarrhoea [Recovered/Resolved]
  - Gastrointestinal pain [Unknown]
  - Decreased appetite [Unknown]
  - Abdominal pain upper [Unknown]
  - Fatigue [Unknown]
  - Post-traumatic neck syndrome [Unknown]
  - Musculoskeletal stiffness [Unknown]
  - Sleep disorder [Unknown]
  - Chest pain [Unknown]
  - Arthropod bite [Unknown]

NARRATIVE: CASE EVENT DATE: 20220615
